FAERS Safety Report 13473658 (Version 2)
Quarter: 2017Q2

REPORT INFORMATION
  Report Type: Spontaneous
  Country: US (occurrence: US)
  Receive Date: 20170424
  Receipt Date: 20170609
  Transmission Date: 20170830
  Serious: Yes (Hospitalization)
  Sender: FDA-Public Use
  Company Number: US-SA-2017SA072055

PATIENT
  Age: 82 Year
  Sex: Female
  Weight: 74.8 kg

DRUGS (6)
  1. ASA [Concomitant]
     Active Substance: ASPIRIN
  2. FUROSEMIDE. [Concomitant]
     Active Substance: FUROSEMIDE
  3. SOLOSTAR [Concomitant]
     Active Substance: DEVICE
     Dates: start: 2015, end: 201704
  4. LANTUS SOLOSTAR [Suspect]
     Active Substance: INSULIN GLARGINE
     Indication: TYPE 2 DIABETES MELLITUS
     Dosage: DOSE:28 UNIT(S)
     Route: 051
     Dates: start: 2015, end: 201704
  5. PROTONIX [Concomitant]
     Active Substance: PANTOPRAZOLE SODIUM
  6. JANUMET [Concomitant]
     Active Substance: METFORMIN HYDROCHLORIDE\SITAGLIPTIN PHOSPHATE

REACTIONS (5)
  - Unevaluable event [Unknown]
  - Hospitalisation [Unknown]
  - Stress [Unknown]
  - Blood glucose abnormal [Unknown]
  - Visual impairment [Unknown]

NARRATIVE: CASE EVENT DATE: 201704
